FAERS Safety Report 7239517 (Version 2)
Quarter: 2014Q1

REPORT INFORMATION
  Report Type: Spontaneous
  Country: NL (occurrence: NL)
  Receive Date: 20100107
  Receipt Date: 20140113
  Transmission Date: 20141002
  Serious: Yes (Death, Other)
  Sender: FDA-Public Use
  Company Number: NL-CELGENEUS-114-21880-10010140

PATIENT
  Sex: 0

DRUGS (6)
  1. REVLIMID [Suspect]
     Indication: PLASMA CELL MYELOMA
     Dosage: 10-25
     Route: 048
  2. CYCLOPHOSPHAMIDE [Concomitant]
     Indication: PLASMA CELL MYELOMA
     Dosage: 50 OR 100
     Route: 048
  3. CYCLOPHOSPHAMIDE [Concomitant]
     Dosage: DOSE REDUCED TO 50%
     Route: 048
  4. PREDNISONE [Concomitant]
     Indication: PLASMA CELL MYELOMA
     Dosage: 20 MG / TAPERED TO 10 MG
     Route: 065
  5. ASPIRIN [Concomitant]
     Indication: THROMBOSIS PROPHYLAXIS
     Dosage: 100 MILLIGRAM
     Route: 065
  6. COTRIMOXAZOL [Concomitant]
     Indication: INFECTION PROPHYLAXIS
     Dosage: 480 MILLIGRAM
     Route: 065

REACTIONS (13)
  - Plasma cell myeloma [Fatal]
  - Colitis [Unknown]
  - Deep vein thrombosis [Unknown]
  - Pneumonia [Unknown]
  - Neutropenia [Unknown]
  - Bladder irritation [Recovered/Resolved]
  - Anaemia [Unknown]
  - Thrombocytopenia [Unknown]
  - Upper respiratory tract infection [Unknown]
  - Urinary tract infection [Unknown]
  - Fatigue [Unknown]
  - Respiratory tract infection [Unknown]
  - Dyspnoea [Unknown]
